FAERS Safety Report 17399700 (Version 1)
Quarter: 2020Q1

REPORT INFORMATION
  Report Type: Spontaneous
  Country: FI (occurrence: FI)
  Receive Date: 20200211
  Receipt Date: 20200211
  Transmission Date: 20200409
  Serious: Yes (Disabling)
  Sender: FDA-Public Use
  Company Number: FI-TEVA-2020-FI-1183982

PATIENT
  Age: 82 Year
  Sex: Female

DRUGS (3)
  1. EMCONCOR COMP [Concomitant]
     Indication: BLOOD PRESSURE MEASUREMENT
  2. EMCONCOR COMP [Concomitant]
     Indication: CARDIAC DISORDER
     Dosage: 1,DF,DAILY
  3. LOSATRIX [Suspect]
     Active Substance: LOSARTAN POTASSIUM
     Indication: BLOOD PRESSURE MEASUREMENT
     Dates: start: 201906

REACTIONS (4)
  - Dyspnoea [Not Recovered/Not Resolved]
  - Tremor [Not Recovered/Not Resolved]
  - Dizziness [Not Recovered/Not Resolved]
  - Malaise [Not Recovered/Not Resolved]

NARRATIVE: CASE EVENT DATE: 20190715
